FAERS Safety Report 9642713 (Version 3)
Quarter: 2013Q4

REPORT INFORMATION
  Report Type: Spontaneous
  Country: US (occurrence: US)
  Receive Date: 20131024
  Receipt Date: 20131112
  Transmission Date: 20140711
  Serious: No
  Sender: FDA-Public Use
  Company Number: US-BAYER-2013-129125

PATIENT
  Age: 38 Year
  Sex: Female

DRUGS (2)
  1. MIRENA [Suspect]
     Dosage: DAILY DOSE 20 ?G
     Route: 015
  2. MIRENA [Suspect]
     Dosage: DAILY DOSE 20 ?G
     Route: 015
     Dates: start: 20130827, end: 20130827

REACTIONS (6)
  - Smear cervix abnormal [None]
  - Device difficult to use [Recovered/Resolved]
  - Scar [None]
  - Procedural pain [None]
  - Device difficult to use [None]
  - Suspected counterfeit product [None]
